FAERS Safety Report 25588426 (Version 1)
Quarter: 2025Q3

REPORT INFORMATION
  Report Type: Spontaneous
  Country: CN (occurrence: CN)
  Receive Date: 20250722
  Receipt Date: 20250722
  Transmission Date: 20251021
  Serious: Yes (Hospitalization)
  Sender: BEIGENE
  Company Number: CN-BEIGENE-BGN-2025-011735

PATIENT
  Age: 75 Year
  Weight: 61 kg

DRUGS (4)
  1. TISLELIZUMAB [Suspect]
     Active Substance: TISLELIZUMAB
     Indication: Lung carcinoma cell type unspecified recurrent
  2. ETOPOSIDE [Suspect]
     Active Substance: ETOPOSIDE
     Indication: Lung carcinoma cell type unspecified recurrent
     Dosage: 4 MILLILITER, QD
  3. NEDAPLATIN [Suspect]
     Active Substance: NEDAPLATIN
     Indication: Lung carcinoma cell type unspecified recurrent
     Dosage: 40 MILLIGRAM, QD
  4. LOBAPLATIN [Suspect]
     Active Substance: LOBAPLATIN
     Indication: Lung carcinoma cell type unspecified recurrent

REACTIONS (1)
  - Myelosuppression [Unknown]
